FAERS Safety Report 8072655-4 (Version None)
Quarter: 2012Q1

REPORT INFORMATION
  Report Type: 
  Country: None (occurrence: None)
  Receive Date: 20120120
  Receipt Date: 20120109
  Transmission Date: 20120608
  Serious: Yes (Hospitalization, Other)
  Sender: FDA-Public Use
  Company Number: 2012P1002468

PATIENT
  Age: 60 Year
  Sex: Female

DRUGS (8)
  1. METRONIDAZOLE [Concomitant]
  2. FENTANYL CITRATE [Concomitant]
  3. CIPROFLOXACIN [Suspect]
     Indication: PERIDIVERTICULAR ABSCESS
     Dosage: 400 MG;Q24H; IV
     Route: 042
  4. MORPHINE [Concomitant]
  5. METOCLOPRAMIDE [Concomitant]
  6. MIDAZOLAM [Concomitant]
  7. CINACALCET HYDROCHLORIDE [Concomitant]
  8. CEFOXITIN [Suspect]
     Indication: PERIDIVERTICULAR ABSCESS
     Dosage: 2;1 GM, Q12H, IV
     Route: 042

REACTIONS (20)
  - MYOCLONUS [None]
  - SCREAMING [None]
  - SEDATION [None]
  - ANXIETY [None]
  - FEAR [None]
  - PARANOIA [None]
  - TREATMENT NONCOMPLIANCE [None]
  - DELIRIUM [None]
  - DISTURBANCE IN ATTENTION [None]
  - WHITE BLOOD CELL COUNT INCREASED [None]
  - CEREBRAL SMALL VESSEL ISCHAEMIC DISEASE [None]
  - SUSPICIOUSNESS [None]
  - ABNORMAL BEHAVIOUR [None]
  - SUICIDAL BEHAVIOUR [None]
  - RETCHING [None]
  - REFUSAL OF TREATMENT BY RELATIVE [None]
  - TREMOR [None]
  - NEUROTOXICITY [None]
  - MEMORY IMPAIRMENT [None]
  - CATATONIA [None]
